FAERS Safety Report 24568307 (Version 1)
Quarter: 2024Q4

REPORT INFORMATION
  Report Type: Spontaneous
  Country: CA (occurrence: CA)
  Receive Date: 20241031
  Receipt Date: 20241031
  Transmission Date: 20250115
  Serious: Yes (Hospitalization, Other)
  Sender: UCB
  Company Number: CA-UCBSA-2024055924

PATIENT
  Age: 87 Year
  Sex: Male

DRUGS (4)
  1. LEVETIRACETAM [Suspect]
     Active Substance: LEVETIRACETAM
     Indication: Simple partial seizures
     Dosage: 3000 MILLIGRAM, ONCE DAILY (QD)
  2. LEVETIRACETAM [Suspect]
     Active Substance: LEVETIRACETAM
     Dosage: 750 MILLIGRAM, 2X/DAY (BID)
  3. CLOBAZAM [Suspect]
     Active Substance: CLOBAZAM
     Indication: Simple partial seizures
     Dosage: 30 MILLIGRAM, ONCE DAILY (QD)
  4. VALPROIC ACID [Suspect]
     Active Substance: VALPROIC ACID
     Indication: Simple partial seizures
     Dosage: 1000 MILLIGRAM, ONCE DAILY (QD)

REACTIONS (3)
  - Delirium [Recovering/Resolving]
  - Fall [Recovering/Resolving]
  - Inappropriate schedule of product administration [Unknown]
